FAERS Safety Report 11145704 (Version 1)
Quarter: 2015Q2

REPORT INFORMATION
  Report Type: Spontaneous
  Country: PL (occurrence: None)
  Receive Date: 20150526
  Receipt Date: 20150526
  Transmission Date: 20150821
  Serious: Yes (Death, Other)
  Sender: FDA-Public Use
  Company Number: FK201502382

PATIENT
  Age: 32 Year
  Sex: Female

DRUGS (3)
  1. GANCICLOVIR FOR INJECTION (MANUFACTURER UNKNOWN) (GANCICLOVIR FOR INJECTION) GANCICLOVIR FOR INJECTION [Suspect]
     Active Substance: GANCICLOVIR
     Indication: CYTOMEGALOVIRUS INFECTION
  2. TACROLIMUS (TACROLIMUS) [Suspect]
     Active Substance: TACROLIMUS
     Indication: IMMUNOSUPPRESSANT DRUG THERAPY
  3. LEFLUNOMIDE (LEFLUNOMIDE) [Suspect]
     Active Substance: LEFLUNOMIDE
     Indication: CYTOMEGALOVIRUS INFECTION

REACTIONS (20)
  - Multi-organ failure [None]
  - Cholangitis [None]
  - Acute hepatitis C [None]
  - Diabetes mellitus [None]
  - Respiratory tract infection [None]
  - Aspartate aminotransferase increased [None]
  - Drug ineffective [None]
  - Pancytopenia [None]
  - Klebsiella test positive [None]
  - Pyuria [None]
  - Toxicity to various agents [None]
  - Gamma-glutamyltransferase increased [None]
  - Enterococcus test positive [None]
  - Cough [None]
  - Seizure [None]
  - Alanine aminotransferase increased [None]
  - Hypotension [None]
  - Respiratory disorder [None]
  - Hepatic failure [None]
  - Viral load increased [None]
